FAERS Safety Report 5323659-3 (Version None)
Quarter: 2007Q2

REPORT INFORMATION
  Report Type: 
  Country: None (occurrence: None)
  Receive Date: 20070511
  Receipt Date: 20070511
  Transmission Date: 20071010
  Serious: Yes (Other)
  Sender: FDA-Public Use
  Company Number: None

PATIENT
  Age: 59 Year
  Sex: Male
  Weight: 102.0593 kg

DRUGS (1)
  1. ROSUVASTATIN [Suspect]
     Indication: DYSLIPIDAEMIA

REACTIONS (1)
  - MYALGIA [None]
